FAERS Safety Report 10808392 (Version 2)
Quarter: 2016Q1

REPORT INFORMATION
  Report Type: Report from Study
  Country: PR (occurrence: PR)
  Receive Date: 20150217
  Receipt Date: 20160125
  Transmission Date: 20160525
  Serious: No
  Sender: FDA-Public Use
  Company Number: PR-ABBVIE-14K-131-1298585-00

PATIENT
  Sex: Female

DRUGS (7)
  1. METHOTREXATE [Concomitant]
     Active Substance: METHOTREXATE
     Indication: PRODUCT USED FOR UNKNOWN INDICATION
  2. HUMIRA [Suspect]
     Active Substance: ADALIMUMAB
     Indication: RHEUMATOID ARTHRITIS
     Route: 058
     Dates: start: 20130628
  3. VOLTAREN [Concomitant]
     Active Substance: DICLOFENAC SODIUM
     Indication: PRODUCT USED FOR UNKNOWN INDICATION
  4. UNKNOWN PUMP [Concomitant]
     Indication: ASTHMA
     Route: 048
  5. UNKNOWN PUMP [Concomitant]
     Indication: HYPERSENSITIVITY
     Route: 048
  6. ZYRTEC [Concomitant]
     Active Substance: CETIRIZINE HYDROCHLORIDE
     Indication: PRODUCT USED FOR UNKNOWN INDICATION
  7. FLONASE [Concomitant]
     Active Substance: FLUTICASONE PROPIONATE
     Indication: RESPIRATORY TRACT CONGESTION
     Route: 045

REACTIONS (11)
  - Haemoglobin decreased [Not Recovered/Not Resolved]
  - Epistaxis [Not Recovered/Not Resolved]
  - Dry skin [Not Recovered/Not Resolved]
  - Nail discolouration [Not Recovered/Not Resolved]
  - Throat irritation [Not Recovered/Not Resolved]
  - Onychoclasis [Not Recovered/Not Resolved]
  - House dust allergy [Not Recovered/Not Resolved]
  - Asthma [Not Recovered/Not Resolved]
  - Nasopharyngitis [Recovered/Resolved]
  - Dysphonia [Not Recovered/Not Resolved]
  - Nasal congestion [Not Recovered/Not Resolved]

NARRATIVE: CASE EVENT DATE: 2014
